FAERS Safety Report 15603929 (Version 1)
Quarter: 2018Q4

REPORT INFORMATION
  Report Type: Spontaneous
  Country: JP (occurrence: JP)
  Receive Date: 20181109
  Receipt Date: 20181109
  Transmission Date: 20190205
  Serious: Yes (Death)
  Sender: FDA-Public Use
  Company Number: JP-ACTELION-A-US2018-181720

PATIENT
  Sex: Male

DRUGS (1)
  1. VENTAVIS [Suspect]
     Active Substance: ILOPROST
     Indication: PULMONARY ARTERIAL HYPERTENSION
     Dosage: UNK, 6 ID
     Route: 055
     Dates: start: 201708, end: 201807

REACTIONS (2)
  - Respiratory muscle weakness [Unknown]
  - Right ventricular failure [Fatal]

NARRATIVE: CASE EVENT DATE: 201807
